FAERS Safety Report 14480030 (Version 3)
Quarter: 2018Q1

REPORT INFORMATION
  Report Type: Report from Study
  Country: US (occurrence: US)
  Receive Date: 20180202
  Receipt Date: 20180328
  Transmission Date: 20180509
  Serious: Yes (Other)
  Sender: FDA-Public Use
  Company Number: US-BAYER-2017-186941

PATIENT
  Age: 66 Year
  Sex: Male

DRUGS (9)
  1. STIVARGA [Suspect]
     Active Substance: REGORAFENIB
     Indication: RECTAL CANCER
     Dosage: 160 MG ONCE DAILY WITH FOOD (LOW-FAT BREAKFAST) FOR 21 DAYS ON AND 7 DAYS OFF AND REPEAT CYCLE
     Route: 048
     Dates: start: 201802, end: 201802
  2. STIVARGA [Suspect]
     Active Substance: REGORAFENIB
     Indication: RECTAL CANCER
     Dosage: DAILY DOSE 80 MG
     Route: 048
     Dates: start: 20171120, end: 20171127
  3. STIVARGA [Suspect]
     Active Substance: REGORAFENIB
     Indication: RECTAL CANCER
     Dosage: DAILY DOSE 160 MG (21 DAYS ON, 7 DAYS OFF)
     Route: 048
     Dates: start: 20170907, end: 20170924
  4. STIVARGA [Suspect]
     Active Substance: REGORAFENIB
     Indication: RECTAL CANCER
     Dosage: 120 MG DAILY DOSE
     Route: 048
     Dates: start: 20180101, end: 20180119
  5. STIVARGA [Suspect]
     Active Substance: REGORAFENIB
     Indication: RECTAL CANCER
     Dosage: DAILY DOSE 160 MG
     Route: 048
     Dates: start: 20170925, end: 2017
  6. STIVARGA [Suspect]
     Active Substance: REGORAFENIB
     Indication: RECTAL CANCER
     Dosage: DAILY DOSE 120 MG
     Route: 048
     Dates: start: 20171204, end: 2017
  7. STIVARGA [Suspect]
     Active Substance: REGORAFENIB
     Indication: RECTAL CANCER
     Dosage: DAILY DOSE 120 MG
     Route: 048
     Dates: start: 20171119, end: 20171119
  8. STIVARGA [Suspect]
     Active Substance: REGORAFENIB
     Indication: RECTAL CANCER
     Dosage: 80 MG DAILY
     Route: 048
     Dates: start: 20180201, end: 201802
  9. STIVARGA [Suspect]
     Active Substance: REGORAFENIB
     Indication: RECTAL CANCER
     Dosage: 120 MG, DAILY
     Route: 048
     Dates: start: 2017, end: 2017

REACTIONS (18)
  - Malaise [Not Recovered/Not Resolved]
  - Abnormal loss of weight [None]
  - Carcinoembryonic antigen increased [Not Recovered/Not Resolved]
  - Musculoskeletal discomfort [Recovered/Resolved]
  - Gait disturbance [Recovering/Resolving]
  - Oropharyngeal pain [Unknown]
  - Vomiting [Not Recovered/Not Resolved]
  - Dysphonia [Unknown]
  - Inappropriate schedule of drug administration [None]
  - Clostridium difficile infection [Recovered/Resolved]
  - Pain in extremity [Recovered/Resolved]
  - Vomiting [Recovered/Resolved]
  - Pain in extremity [Recovered/Resolved]
  - Diarrhoea [Not Recovered/Not Resolved]
  - Pain in extremity [None]
  - Clostridium difficile infection [Not Recovered/Not Resolved]
  - Diarrhoea [Recovered/Resolved]
  - Drug ineffective [None]

NARRATIVE: CASE EVENT DATE: 201709
